FAERS Safety Report 7630552-X (Version None)
Quarter: 2011Q3

REPORT INFORMATION
  Report Type: 
  Country: None (occurrence: None)
  Receive Date: 20110722
  Receipt Date: 20110712
  Transmission Date: 20111222
  Serious: Yes (Other)
  Sender: FDA-Public Use
  Company Number: PHEH2007US03438

PATIENT
  Sex: Female

DRUGS (21)
  1. METHOTREXATE [Concomitant]
     Indication: SARCOIDOSIS
     Dates: end: 20030101
  2. PROVERA [Concomitant]
     Dosage: 2.5 MG, QD
  3. AREDIA [Suspect]
     Indication: SARCOIDOSIS
  4. ZOMETA [Suspect]
     Indication: SARCOIDOSIS
     Dates: start: 20031201
  5. CELEBREX [Concomitant]
  6. TYLENOL-500 [Concomitant]
  7. SEPTRA [Concomitant]
  8. VIOXX [Concomitant]
  9. ARANESP [Concomitant]
     Indication: ANAEMIA
  10. NAPROSYN [Concomitant]
     Dates: start: 20060101
  11. INFLUENZA VACCINE [Concomitant]
     Dates: start: 20040101
  12. PNEUMOCOCCAL VACCINE [Concomitant]
  13. PREMARIN [Concomitant]
     Indication: MENOPAUSE
     Dosage: 0.3 MG, QD
  14. CORTISONE ACETATE [Concomitant]
     Dosage: 80 MG, ONCE/SINGLE
     Route: 030
     Dates: start: 20030601
  15. AUGMENTIN '125' [Interacting]
     Indication: OSTEOMYELITIS
  16. CALCIUM W/VITAMIN D NOS [Concomitant]
  17. PREMPRO [Concomitant]
  18. PREDNISONE [Concomitant]
  19. PREVACID [Concomitant]
  20. SUDAFED 12 HOUR [Concomitant]
  21. EPOGEN [Concomitant]

REACTIONS (61)
  - GINGIVAL ABSCESS [None]
  - VERTIGO [None]
  - SPLENOMEGALY [None]
  - DECREASED APPETITE [None]
  - ATROPHIC VULVOVAGINITIS [None]
  - PLANTAR FASCIITIS [None]
  - NEPHROPATHY [None]
  - HAEMORRHAGE [None]
  - BONE DISORDER [None]
  - ANGIOTENSIN CONVERTING ENZYME INCREASED [None]
  - PULMONARY EMBOLISM [None]
  - DYSPNOEA [None]
  - WEIGHT DECREASED [None]
  - COLONIC POLYP [None]
  - PAIN [None]
  - MALAISE [None]
  - ATELECTASIS [None]
  - OSTEONECROSIS [None]
  - DYSPHONIA [None]
  - OSTEOMYELITIS [None]
  - TOOTHACHE [None]
  - DEPRESSION [None]
  - CERVICITIS [None]
  - HAEMORRHOIDS [None]
  - HERPES ZOSTER [None]
  - CHOLELITHIASIS [None]
  - OSTEONECROSIS OF JAW [None]
  - TYMPANIC MEMBRANE DISORDER [None]
  - ARTHRALGIA [None]
  - PELVIC PAIN [None]
  - NEUROPATHY PERIPHERAL [None]
  - SKIN HYPERPIGMENTATION [None]
  - OROPHARYNGEAL PAIN [None]
  - RHINITIS SEASONAL [None]
  - MYALGIA [None]
  - SARCOIDOSIS [None]
  - ANAEMIA [None]
  - BACK PAIN [None]
  - CHEST PAIN [None]
  - VISION BLURRED [None]
  - DISEASE PROGRESSION [None]
  - POLLAKIURIA [None]
  - MICTURITION URGENCY [None]
  - NOCTURIA [None]
  - RECTAL HAEMORRHAGE [None]
  - DIARRHOEA [None]
  - LOBAR PNEUMONIA [None]
  - TINNITUS [None]
  - IMPAIRED HEALING [None]
  - INSOMNIA [None]
  - PYREXIA [None]
  - FEELING ABNORMAL [None]
  - MUSCLE SPASMS [None]
  - BLOOD UREA INCREASED [None]
  - UTERINE HAEMORRHAGE [None]
  - ENDOMETRIAL ATROPHY [None]
  - HEADACHE [None]
  - RASH [None]
  - VAGINAL HAEMORRHAGE [None]
  - SINUS CONGESTION [None]
  - HYDRONEPHROSIS [None]
